FAERS Safety Report 11678191 (Version 4)
Quarter: 2015Q4

REPORT INFORMATION
  Report Type: Spontaneous
  Country: JP (occurrence: JP)
  Receive Date: 20151028
  Receipt Date: 20151118
  Transmission Date: 20160304
  Serious: Yes (Hospitalization, Other)
  Sender: FDA-Public Use
  Company Number: JP-009507513-1510JPN012087

PATIENT
  Age: 64 Year
  Sex: Female

DRUGS (2)
  1. REFLEX [Suspect]
     Active Substance: MIRTAZAPINE
     Indication: DEPRESSION
     Route: 048
  2. OLANZAPINE. [Concomitant]
     Active Substance: OLANZAPINE
     Route: 048

REACTIONS (3)
  - Neuroleptic malignant syndrome [Unknown]
  - Hypophagia [Unknown]
  - Delusion [Unknown]
